FAERS Safety Report 7429454-3 (Version None)
Quarter: 2011Q2

REPORT INFORMATION
  Report Type: 
  Country: None (occurrence: None)
  Receive Date: 20110421
  Receipt Date: 20110329
  Transmission Date: 20111010
  Serious: No
  Sender: FDA-Public Use
  Company Number: US-B.I. PHARMACEUTICALS,INC./RIDGEFIELD-2011-BP-09541BP

PATIENT
  Sex: Female

DRUGS (17)
  1. VESICARE [Concomitant]
     Indication: BLADDER DISORDER
     Dosage: 10 MG
  2. CALCIUM PLUS D [Concomitant]
     Dosage: 600 UNK
  3. PRADAXA [Suspect]
     Indication: ATRIAL FIBRILLATION
     Dosage: 300 MG
     Route: 048
     Dates: start: 20101201, end: 20110329
  4. VITAMIN B-12 [Concomitant]
     Indication: DECUBITUS ULCER
     Dosage: 100 MG
  5. PLAQUENIL [Concomitant]
     Indication: ARTHRITIS
     Dosage: 400 MG
  6. ULTRAM ER [Concomitant]
     Indication: BACK DISORDER
     Dosage: 200 MG
  7. EPIDURAL INJECTIONS [Concomitant]
     Indication: BACK DISORDER
  8. RISPERDAL [Concomitant]
     Indication: ANXIETY
     Dosage: 1 MG
  9. METOPROLOL [Concomitant]
     Indication: HYPERTENSION
  10. ZANTAC [Concomitant]
  11. STOOL SOFTENER WITH STIMULANT [Concomitant]
  12. VITAMIN D [Concomitant]
  13. MICRO-K [Concomitant]
     Dosage: 1 MEQ
  14. LANSOPRAZOLE [Concomitant]
     Indication: INFLAMMATION
     Dosage: 30 MG
  15. ACETAMINOPHEN [Concomitant]
     Indication: BACK DISORDER
  16. FISH OIL [Concomitant]
  17. XANAX [Concomitant]
     Indication: ANXIETY
     Dosage: 0.6 MG

REACTIONS (8)
  - PAIN IN EXTREMITY [None]
  - HEADACHE [None]
  - EYE PAIN [None]
  - FATIGUE [None]
  - HYPERSOMNIA [None]
  - ASTHENIA [None]
  - BRONCHITIS [None]
  - MUSCULAR WEAKNESS [None]
